FAERS Safety Report 7401721-9 (Version None)
Quarter: 2011Q1

REPORT INFORMATION
  Report Type: 
  Country: None (occurrence: None)
  Receive Date: 20110329
  Receipt Date: 20110314
  Transmission Date: 20110831
  Serious: Yes (Hospitalization)
  Sender: FDA-Public Use
  Company Number: 2011MA002401

PATIENT
  Age: 17 Week
  Sex: Female

DRUGS (1)
  1. PROPRANOLOL HCL EXTENDED-RELEASE CAPSULES USP, 160MG (AELLC) (PROPRANO [Suspect]
     Dosage: 1 MG/KG;TID;PO
     Route: 048

REACTIONS (4)
  - BLOOD LACTATE DEHYDROGENASE INCREASED [None]
  - WOUND INFECTION STAPHYLOCOCCAL [None]
  - HYPOTENSION [None]
  - HYPERKALAEMIA [None]
